FAERS Safety Report 10018664 (Version 2)
Quarter: 2014Q2

REPORT INFORMATION
  Report Type: Report from Study
  Country: US (occurrence: US)
  Receive Date: 20140318
  Receipt Date: 20140402
  Transmission Date: 20141212
  Serious: Yes (Hospitalization)
  Sender: FDA-Public Use
  Company Number: US-ACTELION-A-NJ2014-95899

PATIENT
  Age: 71 Year
  Sex: Female

DRUGS (10)
  1. MACITENTAN [Suspect]
     Indication: PULMONARY ARTERIAL HYPERTENSION
     Dosage: 10 MG, QD
     Route: 048
     Dates: start: 20140217, end: 20140227
  2. WARFARIN [Concomitant]
  3. METFORMIN [Concomitant]
  4. ZEBETA [Concomitant]
  5. TORASEMIDE [Concomitant]
  6. ASA [Concomitant]
  7. CARDIZEM [Concomitant]
  8. LIPITOR [Concomitant]
  9. COLCHICINE [Concomitant]
  10. REGLAN [Concomitant]

REACTIONS (10)
  - Anaemia [Recovering/Resolving]
  - Haematocrit decreased [Recovering/Resolving]
  - Haemoglobin decreased [Recovering/Resolving]
  - Transfusion [Recovering/Resolving]
  - Blood creatinine increased [Recovered/Resolved]
  - Cardiac failure congestive [Recovered/Resolved]
  - Pulmonary oedema [Recovered/Resolved]
  - Fluid retention [Recovered/Resolved]
  - Condition aggravated [Recovered/Resolved]
  - Dyspnoea [Recovering/Resolving]
